FAERS Safety Report 6656214-3 (Version None)
Quarter: 2010Q1

REPORT INFORMATION
  Report Type: 
  Country: None (occurrence: None)
  Receive Date: 20100326
  Receipt Date: 20100326
  Transmission Date: 20100710
  Serious: Yes (Hospitalization)
  Sender: FDA-Public Use
  Company Number: None

PATIENT
  Age: 43 Year
  Sex: Female
  Weight: 116.1208 kg

DRUGS (1)
  1. TOPIRAMATE [Suspect]
     Indication: AFFECTIVE DISORDER
     Dates: start: 20091105, end: 20091113

REACTIONS (1)
  - ANGLE CLOSURE GLAUCOMA [None]
